FAERS Safety Report 7680963-1 (Version None)
Quarter: 2011Q3

REPORT INFORMATION
  Report Type: 
  Country: None (occurrence: None)
  Receive Date: 20110812
  Receipt Date: 20110728
  Transmission Date: 20111222
  Serious: Yes (Hospitalization)
  Sender: FDA-Public Use
  Company Number: IT-BAYER-2011-066222

PATIENT
  Age: 84 Year
  Sex: Female

DRUGS (2)
  1. ASPIRIN [Suspect]
     Dosage: 100 MG, QD
     Route: 048
     Dates: start: 20100517, end: 20110517
  2. HYDROCHLOROTHIAZIDE W/ OLMESARTAN MEDOXOMIL [Suspect]
     Dosage: DAILY DOSE 1 DF
     Route: 048
     Dates: start: 20100517, end: 20110517

REACTIONS (4)
  - MENTAL DISORDER [None]
  - ADVERSE DRUG REACTION [None]
  - ASTHENIA [None]
  - GAIT DISTURBANCE [None]
